FAERS Safety Report 21364406 (Version 1)
Quarter: 2022Q3

REPORT INFORMATION
  Report Type: Report from Study
  Country: US (occurrence: US)
  Receive Date: 20220922
  Receipt Date: 20220922
  Transmission Date: 20221027
  Serious: Yes (Other)
  Sender: FDA-Public Use
  Company Number: US-ABBVIE-4127881

PATIENT
  Sex: Male

DRUGS (1)
  1. HUMIRA [Suspect]
     Active Substance: ADALIMUMAB
     Indication: Rheumatoid arthritis
     Route: 058

REACTIONS (5)
  - Skin disorder [Unknown]
  - White blood cell count increased [Unknown]
  - Vitamin D decreased [Unknown]
  - Hypervitaminosis [Not Recovered/Not Resolved]
  - Red blood cell count decreased [Unknown]
